FAERS Safety Report 7712219-2 (Version None)
Quarter: 2011Q3

REPORT INFORMATION
  Report Type: 
  Country: None (occurrence: None)
  Receive Date: 20110826
  Receipt Date: 20110823
  Transmission Date: 20111222
  Serious: Yes (Hospitalization)
  Sender: FDA-Public Use
  Company Number: US-GENZYME-CAMP-1001750

PATIENT
  Sex: Female
  Weight: 115 kg

DRUGS (4)
  1. CAMPATH [Suspect]
     Indication: CHRONIC LYMPHOCYTIC LEUKAEMIA
     Dosage: 30 MG, QD
     Route: 058
     Dates: start: 20110214, end: 20110429
  2. VALTREX [Concomitant]
     Indication: HERPES ZOSTER
     Dosage: 500 MG, QD
     Route: 048
     Dates: start: 20110408, end: 20110701
  3. BACTRIM [Concomitant]
     Indication: ANTIFUNGAL PROPHYLAXIS
     Dosage: 800/160 MG, 3 TIMES A WEEK (MWF)
     Route: 048
     Dates: start: 20110204
  4. DIFLUCAN [Concomitant]
     Indication: ANTIFUNGAL PROPHYLAXIS
     Dosage: 100 MG, 3X/W (MWF)
     Route: 048
     Dates: start: 20110204, end: 20110701

REACTIONS (3)
  - HERPES ZOSTER [None]
  - MENTAL STATUS CHANGES [None]
  - ENCEPHALITIS HERPES [None]
